FAERS Safety Report 7231907-8 (Version None)
Quarter: 2011Q1

REPORT INFORMATION
  Report Type: 
  Country: None (occurrence: None)
  Receive Date: 20110118
  Receipt Date: 20110110
  Transmission Date: 20110831
  Serious: Yes (Other)
  Sender: FDA-Public Use
  Company Number: PHHY2011ES01515

PATIENT
  Age: 76 Year
  Sex: Male

DRUGS (4)
  1. AMARYL [Concomitant]
     Dosage: UNK
     Route: 048
  2. ZOMETA [Suspect]
     Dosage: 4 MG, UNK
     Route: 042
     Dates: start: 20090301, end: 20101001
  3. TRANGOREX [Concomitant]
     Dosage: UNK
     Route: 048
  4. GOSERELIN [Concomitant]

REACTIONS (1)
  - OSTEONECROSIS OF JAW [None]
